FAERS Safety Report 8592916-X (Version None)
Quarter: 2012Q3

REPORT INFORMATION
  Report Type: 
  Country: None (occurrence: None)
  Receive Date: 20120814
  Receipt Date: 20120716
  Transmission Date: 20120928
  Serious: Yes (Other)
  Sender: FDA-Public Use
  Company Number: US-ROCHE-1088660

PATIENT
  Age: 40 Week

DRUGS (1)
  1. RITUXAN [Suspect]
     Indication: NON-HODGKIN'S LYMPHOMA
     Route: 064

REACTIONS (2)
  - LYMPHOCYTE COUNT DECREASED [None]
  - MATERNAL EXPOSURE TIMING UNSPECIFIED [None]
